FAERS Safety Report 8570411 (Version 4)
Quarter: 2013Q3

REPORT INFORMATION
  Report Type: Report from Study
  Country: FR (occurrence: FR)
  Receive Date: 20120521
  Receipt Date: 20130708
  Transmission Date: 20140515
  Serious: Yes (Hospitalization, Other)
  Sender: FDA-Public Use
  Company Number: PHHY2012FR041780

PATIENT
  Sex: Male
  Weight: 70 kg

DRUGS (3)
  1. STI571 [Suspect]
     Indication: CHRONIC MYELOID LEUKAEMIA
     Dosage: UNK
     Dates: start: 20070504
  2. ALLOPURINOL [Concomitant]
     Indication: HYPERURICAEMIA
     Dosage: 200 MG, DAILY
  3. FENOFIBRATE [Concomitant]
     Indication: DYSLIPIDAEMIA
     Dosage: 200 MG, UNK

REACTIONS (4)
  - Sciatic nerve palsy [Unknown]
  - Back pain [Recovered/Resolved]
  - Intervertebral disc compression [Unknown]
  - Intervertebral disc protrusion [Recovered/Resolved]
